FAERS Safety Report 13766044 (Version 3)
Quarter: 2017Q4

REPORT INFORMATION
  Report Type: Report from Study
  Country: JP (occurrence: JP)
  Receive Date: 20170718
  Receipt Date: 20171228
  Transmission Date: 20180320
  Serious: Yes (Other)
  Sender: FDA-Public Use
  Company Number: PHJP2017JP022508

PATIENT
  Age: 72 Year
  Sex: Male

DRUGS (3)
  1. ARZERRA [Suspect]
     Active Substance: OFATUMUMAB
     Dosage: UNK
     Route: 041
  2. ARZERRA [Suspect]
     Active Substance: OFATUMUMAB
     Indication: CHRONIC LYMPHOCYTIC LEUKAEMIA
     Dosage: 2000 MG, QD
     Route: 041
     Dates: start: 201706
  3. ARZERRA [Suspect]
     Active Substance: OFATUMUMAB
     Dosage: UNK
     Route: 041
     Dates: start: 20170626, end: 20170626

REACTIONS (1)
  - Systemic lupus erythematosus [Recovering/Resolving]

NARRATIVE: CASE EVENT DATE: 201707
